FAERS Safety Report 17861569 (Version 4)
Quarter: 2020Q3

REPORT INFORMATION
  Report Type: Spontaneous
  Country: US (occurrence: US)
  Receive Date: 20200604
  Receipt Date: 20200717
  Transmission Date: 20201103
  Serious: Yes (Hospitalization, Other)
  Sender: FDA-Public Use
  Company Number: US-GLAXOSMITHKLINE-US2020AMR093259

PATIENT
  Sex: Female

DRUGS (2)
  1. ZEJULA [Suspect]
     Active Substance: NIRAPARIB
     Indication: OVARIAN CANCER
     Dosage: 300 MG, QD
     Route: 065
     Dates: start: 20200516
  2. ZEJULA [Suspect]
     Active Substance: NIRAPARIB
     Dosage: 300 MG, QD
     Route: 065

REACTIONS (19)
  - Fatigue [Unknown]
  - Product dose omission issue [Unknown]
  - Nephrostomy [Unknown]
  - Ascites [Unknown]
  - Cough [Unknown]
  - Pain [Unknown]
  - Asthenia [Unknown]
  - Abdominal cavity drainage [Unknown]
  - Sepsis [Unknown]
  - Pneumonia [Unknown]
  - Dyspnoea [Unknown]
  - Constipation [Unknown]
  - Carbohydrate antigen 125 increased [Unknown]
  - Cardiomegaly [Unknown]
  - Renal disorder [Unknown]
  - Contusion [Unknown]
  - Neoplasm malignant [Unknown]
  - Pleural effusion [Unknown]
  - Blood pressure increased [Recovered/Resolved]
